FAERS Safety Report 8085811-6 (Version None)
Quarter: 2012Q1

REPORT INFORMATION
  Report Type: 
  Country: None (occurrence: None)
  Receive Date: 20120128
  Receipt Date: 20110607
  Transmission Date: 20120608
  Serious: No
  Sender: FDA-Public Use
  Company Number: US-ABBOTT-11P-163-0731343-00

PATIENT
  Sex: Female
  Weight: 65.83 kg

DRUGS (5)
  1. PENTASA [Concomitant]
     Indication: CROHN'S DISEASE
  2. SODIUM TABLET [Concomitant]
     Indication: PRODUCT USED FOR UNKNOWN INDICATION
  3. LORATADINE [Concomitant]
     Indication: HYPERSENSITIVITY
  4. VITAMIN D [Concomitant]
     Indication: VITAMIN SUPPLEMENTATION
  5. HUMIRA [Suspect]
     Indication: CROHN'S DISEASE
     Dosage: 160 MG LOADING DOSE
     Dates: start: 20110602

REACTIONS (4)
  - ABDOMINAL DISCOMFORT [None]
  - JOINT STIFFNESS [None]
  - DRUG INEFFECTIVE [None]
  - DYSPEPSIA [None]
